FAERS Safety Report 9497185 (Version 1)
Quarter: 2013Q3

REPORT INFORMATION
  Report Type: Spontaneous
  Country: US (occurrence: None)
  Receive Date: 20130903
  Receipt Date: 20130903
  Transmission Date: 20140515
  Serious: Yes (Other)
  Sender: FDA-Public Use
  Company Number: None

PATIENT
  Age: 77 Year
  Sex: Male
  Weight: 92.99 kg

DRUGS (1)
  1. COREG [Suspect]
     Indication: BLOOD PRESSURE
     Route: 048
     Dates: end: 20130327

REACTIONS (4)
  - Fall [None]
  - Feeling abnormal [None]
  - Flushing [None]
  - Angina pectoris [None]
